FAERS Safety Report 15110972 (Version 5)
Quarter: 2018Q4

REPORT INFORMATION
  Report Type: Other
  Country: DE (occurrence: DE)
  Receive Date: 20180705
  Receipt Date: 20181116
  Transmission Date: 20190204
  Serious: Yes (Death, Hospitalization, Disabling)
  Sender: FDA-Public Use
  Company Number: DE-CELLTRION INC.-2018DE021039

PATIENT

DRUGS (11)
  1. INFLIXIMAB (UNKNOWN) [Suspect]
     Active Substance: INFLIXIMAB
     Indication: COLITIS ULCERATIVE
     Dosage: 300 MG
     Route: 042
     Dates: start: 20180524, end: 20180524
  2. PREDNISOLONE. [Concomitant]
     Active Substance: PREDNISOLONE
     Dosage: 15 MG
     Route: 048
  3. AZATHIOPRINE. [Concomitant]
     Active Substance: AZATHIOPRINE
     Indication: COLITIS ULCERATIVE
     Dosage: 125 MG, DAILY,
     Route: 048
     Dates: start: 20180222
  4. CLEMASTIN [Concomitant]
     Active Substance: CLEMASTINE
     Indication: PREMEDICATION
     Dosage: 2 MG
     Route: 042
  5. EPINEPHRINE. [Suspect]
     Active Substance: EPINEPHRINE
     Indication: PRODUCT USED FOR UNKNOWN INDICATION
     Route: 058
  6. PANTOZOL [Concomitant]
     Active Substance: PANTOPRAZOLE SODIUM
     Dosage: 40 MG
  7. MESALAZIN [Concomitant]
     Active Substance: MESALAMINE
     Dosage: SALOFALK 4G/60 ML/ MESALAZIN 4G AS ^CLYSMA^
     Route: 065
     Dates: start: 201709
  8. OMEPRAZOLE. [Concomitant]
     Active Substance: OMEPRAZOLE
     Indication: COLITIS ULCERATIVE
     Dosage: 40 MG, DAILY
     Route: 048
     Dates: start: 201712
  9. PREDNISOLONE. [Concomitant]
     Active Substance: PREDNISOLONE
     Indication: COLITIS ULCERATIVE
     Dosage: 20 MG, DAILY (ULCERATIVE COLITIS NOT IN REMISSION)
     Route: 048
     Dates: start: 201712
  10. PREDNISOLONE. [Concomitant]
     Active Substance: PREDNISOLONE
     Indication: PREMEDICATION
     Dosage: 70  MG
     Route: 042
     Dates: start: 201712
  11. MESALAZIN [Concomitant]
     Active Substance: MESALAMINE
     Indication: COLITIS ULCERATIVE
     Dosage: 4 G, DAILY, SALOFALK GRANU-STIX/MESALAZIN
     Route: 048
     Dates: start: 201709

REACTIONS (9)
  - Eyelid ptosis [Not Recovered/Not Resolved]
  - Vertigo [Not Recovered/Not Resolved]
  - Headache [Not Recovered/Not Resolved]
  - Infusion related reaction [Fatal]
  - Vomiting [Not Recovered/Not Resolved]
  - Hypertension [Not Recovered/Not Resolved]
  - Underdose [Unknown]
  - Cerebral haemorrhage [Fatal]
  - Brain herniation [Fatal]

NARRATIVE: CASE EVENT DATE: 20180524
